FAERS Safety Report 5257748-9 (Version None)
Quarter: 2007Q1

REPORT INFORMATION
  Report Type: 
  Country: None (occurrence: None)
  Receive Date: 20070307
  Receipt Date: 20070301
  Transmission Date: 20070707
  Serious: Yes (Death)
  Sender: FDA-Public Use
  Company Number: CN-JNJFOC-20070300511

PATIENT
  Age: 60 Year
  Sex: Female

DRUGS (4)
  1. SPORANOX [Suspect]
     Indication: BRONCHOPULMONARY ASPERGILLOSIS
     Route: 042
  2. TAZOCIN [Concomitant]
     Indication: RESPIRATORY TRACT INFECTION
     Route: 065
  3. FLUCONAZOLE [Concomitant]
     Indication: RESPIRATORY TRACT INFECTION
     Route: 065
  4. TIENAM [Concomitant]
     Indication: RESPIRATORY TRACT INFECTION
     Route: 065

REACTIONS (3)
  - PNEUMONIA FUNGAL [None]
  - RENAL FAILURE ACUTE [None]
  - SEPTIC SHOCK [None]
